FAERS Safety Report 20020370 (Version 1)
Quarter: 2021Q4

REPORT INFORMATION
  Report Type: Spontaneous
  Country: US (occurrence: US)
  Receive Date: 20211101
  Receipt Date: 20211101
  Transmission Date: 20220303
  Serious: No
  Sender: FDA-Public Use
  Company Number: US-GW PHARMA-202110USGW05245

PATIENT

DRUGS (7)
  1. EPIDIOLEX [Suspect]
     Active Substance: CANNABIDIOL
     Indication: Lennox-Gastaut syndrome
     Dosage: 120 MILLIGRAM, BID (RE-SHIPPED ON 22-OCT-2021)
     Route: 048
     Dates: start: 202101
  2. EPIDIOLEX [Suspect]
     Active Substance: CANNABIDIOL
     Indication: Epilepsy
  3. EPIDIOLEX [Suspect]
     Active Substance: CANNABIDIOL
     Indication: Epilepsy
  4. EPIDIOLEX [Suspect]
     Active Substance: CANNABIDIOL
     Indication: Idiopathic generalised epilepsy
  5. SABRIL [Concomitant]
     Active Substance: VIGABATRIN
     Indication: Product used for unknown indication
     Dosage: 5 MILLILITER, BID (1 TO 3 DAYS), FIRST SHIPPED ON 06-OCT-2021
     Route: 048
     Dates: start: 202110, end: 202110
  6. SABRIL [Concomitant]
     Active Substance: VIGABATRIN
     Dosage: 10 MILLILITER, BID (4 TO 6 DAYS)
     Route: 048
     Dates: start: 202110, end: 202110
  7. SABRIL [Concomitant]
     Active Substance: VIGABATRIN
     Dosage: 15 MILLILITER, BID
     Route: 048
     Dates: start: 202110, end: 202110

REACTIONS (2)
  - Seizure [Unknown]
  - Product administered to patient of inappropriate age [Unknown]

NARRATIVE: CASE EVENT DATE: 20211001
